FAERS Safety Report 13036099 (Version 1)
Quarter: 2016Q4

REPORT INFORMATION
  Report Type: Spontaneous
  Country: IT (occurrence: IT)
  Receive Date: 20161216
  Receipt Date: 20161216
  Transmission Date: 20170207
  Serious: Yes (Other)
  Sender: FDA-Public Use
  Company Number: IT-ROCHE-1866243

PATIENT
  Age: 33 Year
  Sex: Male

DRUGS (2)
  1. VEMURAFENIB [Suspect]
     Active Substance: VEMURAFENIB
     Indication: MALIGNANT MELANOMA
     Route: 065
     Dates: start: 201503, end: 201611
  2. COBIMETINIB [Suspect]
     Active Substance: COBIMETINIB
     Indication: PRODUCT USED FOR UNKNOWN INDICATION
     Route: 065
     Dates: start: 201602, end: 201611

REACTIONS (3)
  - Dysarthria [Unknown]
  - Seizure [Unknown]
  - Hemiparesis [Unknown]

NARRATIVE: CASE EVENT DATE: 201611
